FAERS Safety Report 9912500 (Version 1)
Quarter: 2014Q1

REPORT INFORMATION
  Report Type: Spontaneous
  Country: IT (occurrence: IT)
  Receive Date: 20140220
  Receipt Date: 20140220
  Transmission Date: 20141002
  Serious: Yes (Other)
  Sender: FDA-Public Use
  Company Number: IT-BRISTOL-MYERS SQUIBB COMPANY-20195202

PATIENT
  Age: 78 Year
  Sex: Female

DRUGS (24)
  1. COUMADIN TABS 5 MG [Suspect]
     Indication: THROMBOSIS PROPHYLAXIS
     Dosage: INTERRUPTED ON 20-JAN-2014 AND RESTARTED
     Route: 048
     Dates: start: 20130101
  2. CALCITRIOL [Concomitant]
     Route: 048
  3. CALCIUM MEFOLINATE [Concomitant]
     Route: 048
  4. MIRTAZAPINE [Concomitant]
     Route: 048
  5. CARDICOR [Concomitant]
     Dosage: TABS
     Route: 048
  6. DELTACORTENE [Concomitant]
     Dosage: TABS
     Route: 048
  7. DEPALGOS [Concomitant]
     Dosage: 1DF:5+325 MG TABS
     Route: 048
  8. EUTIROX [Concomitant]
     Dosage: TABS
  9. LANOXIN [Concomitant]
     Route: 048
  10. LASIX [Concomitant]
     Dosage: TABS
     Route: 048
  11. LEVOPRAID [Concomitant]
     Dosage: 25 MG/ML ORAL DROPS SOLUTION
     Route: 048
  12. NEXIUM [Concomitant]
     Route: 048
  13. MOVICOL [Concomitant]
     Route: 048
  14. TAVOR [Concomitant]
     Dosage: 1DF:1 UNIT?1 MG TABS
     Route: 048
  15. TRITTICO [Concomitant]
     Dosage: TABS
     Route: 048
  16. ZOLOFT [Concomitant]
     Dosage: TABS
     Route: 048
  17. ZYLORIC [Concomitant]
     Dosage: TABS
     Route: 048
  18. BENTELAN [Concomitant]
     Dosage: 4MG/2ML INJECTION SOLUTION
     Route: 042
  19. ROCEFIN [Concomitant]
     Route: 042
  20. CLASTEON [Concomitant]
     Dosage: 300 MG INFUSION SOLUTION
  21. BREVA [Concomitant]
     Dosage: 15 MG AEROSOL SOLUTION
  22. CLENIL [Concomitant]
     Dosage: 1DF:2 UNIT
  23. ALBENDAZOLE [Concomitant]
     Dosage: TABS
     Route: 048
  24. POTASSIUM CHLORIDE [Concomitant]
     Dosage: CAPS
     Route: 048

REACTIONS (3)
  - Abdominal wall haematoma [Recovering/Resolving]
  - Abdominal pain [Recovering/Resolving]
  - Swelling [Recovering/Resolving]
